FAERS Safety Report 11705263 (Version 2)
Quarter: 2015Q4

REPORT INFORMATION
  Report Type: Spontaneous
  Country: US (occurrence: None)
  Receive Date: 20151106
  Receipt Date: 20151106
  Transmission Date: 20160304
  Serious: No
  Sender: FDA-Public Use
  Company Number: US-MDT-ADR-2015-02097

PATIENT
  Age: 65 Year
  Sex: Male

DRUGS (1)
  1. BACLOFEN INTRATHECAL 4000 MCG/ML [Suspect]
     Active Substance: BACLOFEN
     Indication: MUSCLE SPASTICITY
     Dosage: 349.7 MCG/DAY

REACTIONS (2)
  - Dyskinesia [None]
  - Muscle spasms [None]
